FAERS Safety Report 12722829 (Version 3)
Quarter: 2017Q2

REPORT INFORMATION
  Report Type: Spontaneous
  Country: BR (occurrence: BR)
  Receive Date: 20160907
  Receipt Date: 20170616
  Transmission Date: 20170830
  Serious: Yes (Other)
  Sender: FDA-Public Use
  Company Number: BR-AMGEN-BRASP2016118141

PATIENT
  Age: 40 Year
  Sex: Male

DRUGS (2)
  1. ENBREL [Suspect]
     Active Substance: ETANERCEPT
     Indication: PRODUCT USED FOR UNKNOWN INDICATION
     Dosage: UNK
     Route: 065
     Dates: start: 201607
  2. METHOTREXATE. [Concomitant]
     Active Substance: METHOTREXATE
     Dosage: UNK UNK, UNK

REACTIONS (11)
  - Decreased immune responsiveness [Unknown]
  - Incorrect product storage [Unknown]
  - Chikungunya virus infection [Unknown]
  - Platelet count decreased [Unknown]
  - Condition aggravated [Unknown]
  - Pyrexia [Unknown]
  - Injection site discolouration [Unknown]
  - Drug ineffective [Unknown]
  - Arthralgia [Unknown]
  - Drug administration error [Unknown]
  - Dengue fever [Unknown]

NARRATIVE: CASE EVENT DATE: 201607
